FAERS Safety Report 12695001 (Version 3)
Quarter: 2017Q1

REPORT INFORMATION
  Report Type: Spontaneous
  Country: US (occurrence: US)
  Receive Date: 20160829
  Receipt Date: 20170111
  Transmission Date: 20170428
  Serious: No
  Sender: FDA-Public Use
  Company Number: GXBR2016US002325

PATIENT
  Sex: Female
  Weight: 71.2 kg

DRUGS (1)
  1. GLATOPA [Suspect]
     Active Substance: GLATIRAMER ACETATE
     Indication: MULTIPLE SCLEROSIS
     Dosage: 20 MG, QD
     Route: 065
     Dates: start: 20160401, end: 20160718

REACTIONS (4)
  - Band sensation [Unknown]
  - Hypoaesthesia [Unknown]
  - Chest discomfort [Unknown]
  - Gait disturbance [Unknown]
